FAERS Safety Report 8811215 (Version 1)
Quarter: 2012Q4

REPORT INFORMATION
  Report Type: 
  Country: US (occurrence: US)
  Receive Date: 20120927
  Receipt Date: 20120927
  Transmission Date: 20130627
  Serious: Yes (Other)
  Sender: FDA-Public Use
  Company Number: PHEH2012US018279

PATIENT
  Sex: Female

DRUGS (10)
  1. GLEEVEC [Suspect]
  2. LEVOTHYROXINE [Concomitant]
  3. ALLEGRA [Concomitant]
  4. HYDROCHLOROTHIAZIDE [Concomitant]
  5. LISINOPRIL [Concomitant]
  6. POTASSIUM [Concomitant]
  7. VITAMIN D [Concomitant]
  8. ADVAIR [Concomitant]
  9. FLONASE [Concomitant]
  10. PREGAZONE [Concomitant]

REACTIONS (2)
  - Asthma [Unknown]
  - Hypoaesthesia [Unknown]
